FAERS Safety Report 20376912 (Version 2)
Quarter: 2023Q1

REPORT INFORMATION
  Report Type: Spontaneous
  Country: US (occurrence: US)
  Receive Date: 20220125
  Receipt Date: 20230224
  Transmission Date: 20230417
  Serious: No
  Sender: FDA-Public Use
  Company Number: US-009507513-2201USA003841

PATIENT
  Age: 57 Year
  Sex: Male
  Weight: 115 kg

DRUGS (4)
  1. CUBICIN [Suspect]
     Active Substance: DAPTOMYCIN
     Indication: Purulent pericarditis
     Dosage: 750 MILLIGRAM, EVERY 24 HOURS (8 MG/KG UTILIZING ADJUSTED BODY WEIGHT) IN COMBINATION WITH CEFTAROLI
  2. CUBICIN [Suspect]
     Active Substance: DAPTOMYCIN
     Indication: Staphylococcal bacteraemia
  3. CEFTAROLINE [Concomitant]
     Active Substance: CEFTAROLINE
     Indication: Purulent pericarditis
     Dosage: 600 MILLIGRAM, EVERY 8 HOURS
  4. CEFTAROLINE [Concomitant]
     Active Substance: CEFTAROLINE
     Indication: Staphylococcal bacteraemia

REACTIONS (1)
  - Off label use [Unknown]
